FAERS Safety Report 15329575 (Version 1)
Quarter: 2018Q3

REPORT INFORMATION
  Report Type: Report from Study
  Country: GB (occurrence: GB)
  Receive Date: 20180829
  Receipt Date: 20180829
  Transmission Date: 20181010
  Serious: Yes (Other)
  Sender: FDA-Public Use
  Company Number: GB-TEVA-2018-GB-949575

PATIENT
  Sex: Female

DRUGS (1)
  1. COPAXONE [Suspect]
     Active Substance: GLATIRAMER ACETATE
     Indication: MULTIPLE SCLEROSIS
     Dosage: PRE?FILLED SYRINGE
     Route: 058
     Dates: start: 20171204

REACTIONS (5)
  - Malaise [Unknown]
  - Multiple sclerosis [Unknown]
  - Cardiac disorder [Unknown]
  - Arthralgia [Unknown]
  - Chills [Unknown]
